FAERS Safety Report 10541788 (Version 1)
Quarter: 2014Q4

REPORT INFORMATION
  Report Type: Spontaneous
  Country: US (occurrence: US)
  Receive Date: 20141024
  Receipt Date: 20141024
  Transmission Date: 20150529
  Serious: No
  Sender: FDA-Public Use
  Company Number: US-ALLERGAN-1421587US

PATIENT
  Sex: Female

DRUGS (7)
  1. LUMIGAN [Suspect]
     Active Substance: BIMATOPROST
     Indication: INTRAOCULAR PRESSURE INCREASED
     Dosage: 2 GTT, QHS
     Route: 047
     Dates: end: 201402
  2. BRIMONIDINE [Suspect]
     Active Substance: BRIMONIDINE\BRIMONIDINE TARTRATE
     Indication: HERPES ZOSTER
  3. VITAMINS [Concomitant]
     Active Substance: VITAMINS
  4. TIMOLOL MALEATE. [Suspect]
     Active Substance: TIMOLOL MALEATE
     Indication: HERPES ZOSTER
  5. DEXAMETHASONE. [Suspect]
     Active Substance: DEXAMETHASONE
     Indication: HERPES ZOSTER
     Route: 047
  6. NEOMYCIN AND POLYMYXIN B SULFATES [Suspect]
     Active Substance: NEOMYCIN SULFATE\POLYMYXIN B SULFATE
     Indication: HERPES ZOSTER
  7. ASA [Concomitant]
     Active Substance: ASPIRIN
     Dosage: 81 MG, UNK
     Route: 048

REACTIONS (1)
  - Scleral hyperaemia [Not Recovered/Not Resolved]
